FAERS Safety Report 7730088-1 (Version None)
Quarter: 2011Q3

REPORT INFORMATION
  Report Type: 
  Country: None (occurrence: None)
  Receive Date: 20110906
  Receipt Date: 20110829
  Transmission Date: 20111222
  Serious: Yes (Hospitalization)
  Sender: FDA-Public Use
  Company Number: BR-ROCHE-799381

PATIENT

DRUGS (12)
  1. AMITRIPTYLINE HCL [Suspect]
     Route: 065
  2. LORAZEPAM [Suspect]
     Route: 065
  3. CLONAZEPAM [Suspect]
     Route: 065
  4. CIMETIDINE [Suspect]
     Route: 065
  5. NIFEDIPINE [Suspect]
     Route: 065
  6. AMIODARONE HCL [Suspect]
     Route: 065
  7. DIAZEPAM [Suspect]
     Route: 065
  8. DIGOXIN [Suspect]
     Route: 065
  9. CLONIDINE [Suspect]
     Route: 065
  10. ESTROGENIC SUBSTANCE [Suspect]
     Route: 065
  11. PROPRANOLOL [Suspect]
     Route: 065
  12. FLUOXETINE [Suspect]
     Route: 065

REACTIONS (14)
  - ABDOMINAL PAIN UPPER [None]
  - DIARRHOEA [None]
  - DYSPNOEA [None]
  - COUGH [None]
  - HEADACHE [None]
  - PYREXIA [None]
  - TREMOR [None]
  - TOXICITY TO VARIOUS AGENTS [None]
  - FATIGUE [None]
  - SYNCOPE [None]
  - DIZZINESS [None]
  - ERYTHEMA [None]
  - ABDOMINAL PAIN [None]
  - ARRHYTHMIA [None]
